FAERS Safety Report 6081322-8 (Version None)
Quarter: 2009Q1

REPORT INFORMATION
  Report Type: 
  Country: None (occurrence: None)
  Receive Date: 20090210
  Receipt Date: 20090127
  Transmission Date: 20090719
  Serious: Yes (Disabling, Other)
  Sender: FDA-Public Use
  Company Number: THYM-1000855

PATIENT
  Age: 47 Year
  Sex: Female
  Weight: 60 kg

DRUGS (10)
  1. THYMOGLOBULIN [Suspect]
     Indication: RENAL TRANSPLANT
     Dosage: 1 MG/KG, INTRAVENOUS
     Route: 042
     Dates: start: 20081122, end: 20081127
  2. THYMOGLOBULIN [Suspect]
     Indication: RENAL TRANSPLANT
     Dosage: 1 MG/KG, INTRAVENOUS
     Route: 042
     Dates: start: 20050101
  3. MYCOPHENOLATE MOFETIL [Concomitant]
  4. STEROIDS (STEROIDS) [Concomitant]
  5. IMMUNOSUPPRESSIVE DRUGS (IMMUNOSUPPRESSIVE DRUGS) [Concomitant]
  6. TACROLIMUS [Concomitant]
  7. RANITIDINE [Concomitant]
  8. SULFAMETHOXAZOLE AND TRIMETHOPRIM [Concomitant]
  9. VALGANCICLOVIR HCL [Concomitant]
  10. NISTATIN (NYSTATIN) [Concomitant]

REACTIONS (4)
  - ARTHRALGIA [None]
  - PYREXIA [None]
  - RENAL GRAFT LOSS [None]
  - THROMBOSIS [None]
